FAERS Safety Report 15862690 (Version 3)
Quarter: 2019Q1

REPORT INFORMATION
  Report Type: Report from Study
  Country: NL (occurrence: NL)
  Receive Date: 20190124
  Receipt Date: 20190130
  Transmission Date: 20190417
  Serious: Yes (Other)
  Sender: FDA-Public Use
  Company Number: NL-PFIZER INC-2019033205

PATIENT

DRUGS (3)
  1. BORTEZOMIB. [Suspect]
     Active Substance: BORTEZOMIB
     Indication: PLASMA CELL MYELOMA
     Dosage: 1.3 MG/M2, 2X/WEEK (ON DAYS 1,4,8,11)
     Route: 058
  2. SELINEXOR [Suspect]
     Active Substance: SELINEXOR
     Indication: PLASMA CELL MYELOMA
     Dosage: 45 MG/M2, UNK (DAYS 1,8,15,22)
  3. DEXAMETHASONE. [Suspect]
     Active Substance: DEXAMETHASONE
     Indication: PLASMA CELL MYELOMA
     Dosage: 40 MG, UNK (ON DAYS 1,8,15,22 IN A 28-DAYS SCHEDULE)

REACTIONS (1)
  - Ischaemic stroke [Unknown]
